FAERS Safety Report 10070908 (Version 1)
Quarter: 2014Q2

REPORT INFORMATION
  Report Type: Spontaneous
  Country: CH (occurrence: CH)
  Receive Date: 20140410
  Receipt Date: 20140410
  Transmission Date: 20141212
  Serious: Yes (Hospitalization)
  Sender: FDA-Public Use
  Company Number: PHHY2014CH040512

PATIENT
  Age: 84 Year
  Sex: Female
  Weight: 47.8 kg

DRUGS (12)
  1. DIGOXIN [Suspect]
     Dosage: 62.5 UG, QD
     Route: 048
  2. CIPROXIN//CIPROFLOXACIN HYDROCHLORIDE [Interacting]
     Indication: URINARY TRACT INFECTION
     Dosage: 1 DF, BID
     Route: 048
     Dates: start: 20140312, end: 20140312
  3. DEANXIT [Interacting]
     Dosage: 1 DF, QD
     Route: 048
  4. NOPIL [Concomitant]
     Indication: DEVICE RELATED INFECTION
     Route: 048
  5. ACIDUM FOLICUM STREULI [Concomitant]
     Dosage: 5 MG, UNK
     Route: 048
  6. ASACOL [Concomitant]
     Route: 048
  7. METO ZEROK [Concomitant]
     Route: 048
  8. COMILORID [Concomitant]
     Route: 048
  9. KCL HAUSMANN [Concomitant]
     Route: 048
  10. MARCOUMAR [Concomitant]
     Route: 048
  11. TOREM [Concomitant]
     Route: 048
  12. ZOLPIDEM [Concomitant]
     Route: 048

REACTIONS (1)
  - Epilepsy [Recovered/Resolved]
